FAERS Safety Report 4357869-9 (Version None)
Quarter: 2004Q2

REPORT INFORMATION
  Report Type: 
  Country: None (occurrence: None)
  Receive Date: 20040513
  Receipt Date: 20040513
  Transmission Date: 20050107
  Serious: Yes (Death, Hospitalization)
  Sender: FDA-Public Use
  Company Number: None

PATIENT
  Age: 64 Year
  Sex: Male

DRUGS (8)
  1. PACLITAXEL [Suspect]
     Indication: BLADDER CANCER
     Dosage: 200MG/M2 DAY 1
     Dates: start: 20040102, end: 20040213
  2. COUMADIN [Concomitant]
  3. TENORMIN [Concomitant]
  4. ACTONEL [Concomitant]
  5. VICODIN [Concomitant]
  6. COLACE [Concomitant]
  7. GEMZAR [Suspect]
     Indication: BLADDER CANCER
     Dosage: 800MG/M2, DAY 1 + 8
     Dates: start: 20040102, end: 20040220
  8. CARBOPLATIN [Suspect]
     Indication: BLADDER CANCER
     Dosage: TARGET AUC =5, DAY 1
     Dates: start: 20040102, end: 20040213

REACTIONS (31)
  - ABDOMINAL PAIN [None]
  - ACTIVATED PARTIAL THROMBOPLASTIN TIME PROLONGED [None]
  - ANOREXIA [None]
  - APNOEA [None]
  - ATELECTASIS [None]
  - ATRIAL FIBRILLATION [None]
  - BLOOD PRESSURE DECREASED [None]
  - COAGULOPATHY [None]
  - COMA [None]
  - DIARRHOEA [None]
  - DIZZINESS [None]
  - DYSPNOEA [None]
  - EFFUSION [None]
  - ELECTROCARDIOGRAM ST SEGMENT ABNORMAL [None]
  - ELECTROCARDIOGRAM T WAVE ABNORMAL [None]
  - FLUID RETENTION [None]
  - INTERNATIONAL NORMALISED RATIO INCREASED [None]
  - LEUKOCYTOSIS [None]
  - LOWER GASTROINTESTINAL HAEMORRHAGE [None]
  - NAUSEA [None]
  - NEUTROPHIL COUNT INCREASED [None]
  - PLATELET COUNT DECREASED [None]
  - PLEURAL EFFUSION [None]
  - PROTHROMBIN TIME PROLONGED [None]
  - RENAL FAILURE [None]
  - TACHYCARDIA [None]
  - TACHYPNOEA [None]
  - URINARY TRACT INFECTION [None]
  - VOMITING [None]
  - WEIGHT DECREASED [None]
  - WHITE BLOOD CELL COUNT INCREASED [None]
